FAERS Safety Report 4407970-6 (Version None)
Quarter: 2004Q3

REPORT INFORMATION
  Report Type: 
  Country: None (occurrence: None)
  Receive Date: 20040716
  Receipt Date: 20040706
  Transmission Date: 20050211
  Serious: Yes (Other)
  Sender: FDA-Public Use
  Company Number: DE-JNJFOC-20040701208

PATIENT
  Age: 38 Year
  Sex: Male
  Weight: 67 kg

DRUGS (1)
  1. REMICADE [Suspect]
     Indication: ANKYLOSING SPONDYLITIS
     Dosage: 300 MG, 1 IN 6 WEEK, INTRAVENOUS
     Route: 042
     Dates: start: 20010401

REACTIONS (1)
  - HYPERCHOLESTEROLAEMIA [None]
